FAERS Safety Report 4506747-0 (Version None)
Quarter: 2004Q4

REPORT INFORMATION
  Report Type: 
  Country: None (occurrence: None)
  Receive Date: 20041122
  Receipt Date: 20030626
  Transmission Date: 20050328
  Serious: Yes (Life-Threatening, Hospitalization, Disabling)
  Sender: FDA-Public Use
  Company Number: AU-ROCHE-340885

PATIENT
  Age: 50 Year
  Sex: Male
  Weight: 64.8 kg

DRUGS (8)
  1. PEG-INTERFERON ALFA 2A (RO 25-8310) [Suspect]
     Route: 058
     Dates: start: 20020926, end: 20021102
  2. PEG-INTERFERON ALFA 2A (RO 25-8310) [Suspect]
     Route: 058
     Dates: start: 20021103, end: 20030508
  3. PEG-INTERFERON ALFA 2A (RO 25-8310) [Suspect]
     Route: 058
     Dates: start: 20030509, end: 20030531
  4. PEG-INTERFERON ALFA 2A (RO 25-8310) [Suspect]
     Route: 058
     Dates: start: 20030619, end: 20030729
  5. RIBAVIRIN [Suspect]
     Route: 048
     Dates: start: 20020926, end: 20030312
  6. RIBAVIRIN [Suspect]
     Route: 048
     Dates: start: 20030313, end: 20030522
  7. RIBAVIRIN [Suspect]
     Route: 048
     Dates: start: 20030619, end: 20030729
  8. OMEPRAZOLE [Concomitant]
     Dates: start: 20030524

REACTIONS (7)
  - ANAEMIA [None]
  - ASCITES [None]
  - FEELING ABNORMAL [None]
  - HAEMATEMESIS [None]
  - THROMBOCYTOPENIA [None]
  - VARICES OESOPHAGEAL [None]
  - VIRAL INFECTION [None]
